FAERS Safety Report 6576735-1 (Version None)
Quarter: 2010Q1

REPORT INFORMATION
  Report Type: 
  Country: None (occurrence: None)
  Receive Date: 20100210
  Receipt Date: 20100201
  Transmission Date: 20100710
  Serious: Yes (Hospitalization)
  Sender: FDA-Public Use
  Company Number: JP-ROCHE-682830

PATIENT
  Age: 73 Year
  Sex: Male

DRUGS (7)
  1. RIBAVIRIN [Suspect]
     Route: 065
     Dates: start: 20060201, end: 20060501
  2. RIBAVIRIN [Suspect]
     Route: 065
     Dates: start: 20060601, end: 20060725
  3. PEG-INTRON [Suspect]
     Route: 065
     Dates: start: 20060201, end: 20060725
  4. AMLODIPINE BESYLATE [Concomitant]
     Dosage: DRUG: AMULODIPINE BESILATE
  5. DOXAZOSIN MESILATE [Concomitant]
  6. CLONIDINE HYDROCHLORIDE [Concomitant]
  7. URSODESOXYCHOLIC ACID [Concomitant]

REACTIONS (1)
  - DRUG ERUPTION [None]
